FAERS Safety Report 10176902 (Version 1)
Quarter: 2014Q2

REPORT INFORMATION
  Report Type: Spontaneous
  Country: US (occurrence: US)
  Receive Date: 20140516
  Receipt Date: 20140516
  Transmission Date: 20141212
  Serious: No
  Sender: FDA-Public Use
  Company Number: US-PFIZER INC-2014132846

PATIENT
  Age: 68 Year
  Sex: Female
  Weight: 56.69 kg

DRUGS (1)
  1. LYRICA [Suspect]
     Indication: DIABETIC NEUROPATHY
     Dosage: UNK,2X/DAY

REACTIONS (3)
  - Arthralgia [Unknown]
  - Muscle spasms [Unknown]
  - Neuropathy peripheral [Unknown]
